FAERS Safety Report 25714105 (Version 2)
Quarter: 2025Q4

REPORT INFORMATION
  Report Type: Spontaneous
  Country: CA (occurrence: CA)
  Receive Date: 20250822
  Receipt Date: 20251226
  Transmission Date: 20260118
  Serious: Yes (Hospitalization, Other)
  Sender: TEVA
  Company Number: CA-ABBVIE-6416883

PATIENT
  Age: 71 Year
  Sex: Female
  Weight: 69 kg

DRUGS (4)
  1. OXYTROL [Suspect]
     Active Substance: OXYBUTYNIN
     Indication: Product used for unknown indication
     Route: 062
  2. OXYTROL [Suspect]
     Active Substance: OXYBUTYNIN
     Indication: Product used for unknown indication
     Route: 062
  3. MESALAMINE [Suspect]
     Active Substance: MESALAMINE
     Indication: Colitis
     Dosage: FREQUENCY: 1 EVERY 8 HOURS
     Route: 048
  4. SUCRALFATE [Suspect]
     Active Substance: SUCRALFATE
     Indication: Product used for unknown indication
     Route: 065

REACTIONS (30)
  - Macular degeneration [Unknown]
  - Abdominal pain [Unknown]
  - Radiculopathy [Unknown]
  - Nausea [Unknown]
  - Proctitis [Unknown]
  - Colitis ulcerative [Unknown]
  - Frequent bowel movements [Unknown]
  - Pyrexia [Unknown]
  - Pain [Unknown]
  - Oral candidiasis [Unknown]
  - Procedural pain [Unknown]
  - Headache [Unknown]
  - Vaginal flatulence [Unknown]
  - Paraesthesia oral [Unknown]
  - Off label use [Unknown]
  - Therapeutic product effect incomplete [Unknown]
  - Erythema [Unknown]
  - Drug ineffective [Unknown]
  - Anaemia [Unknown]
  - Haematochezia [Unknown]
  - Infusion related reaction [Unknown]
  - Weight decreased [Unknown]
  - Malaise [Unknown]
  - Dyspepsia [Unknown]
  - Chronic sinusitis [Unknown]
  - Rectal haemorrhage [Unknown]
  - Colitis [Unknown]
  - Female genital tract fistula [Unknown]
  - Vaginal discharge [Unknown]
  - Constipation [Unknown]
